FAERS Safety Report 16774615 (Version 1)
Quarter: 2019Q3

REPORT INFORMATION
  Report Type: Spontaneous
  Country: FR (occurrence: FR)
  Receive Date: 20190905
  Receipt Date: 20190905
  Transmission Date: 20191005
  Serious: Yes (Hospitalization, Other)
  Sender: FDA-Public Use
  Company Number: FR-AUROBINDO-AUR-APL-2019-057520

PATIENT

DRUGS (3)
  1. TAVANIC [Suspect]
     Active Substance: LEVOFLOXACIN
     Indication: PYELONEPHRITIS
     Dosage: 1 DOSAGE FORM
     Route: 048
     Dates: start: 20190801, end: 20190804
  2. SPASFON (PHLOROGLUCINOL\TRIMETHYLPHLOROGLUCINOL) [Suspect]
     Active Substance: PHLOROGLUCINOL\1,3,5-TRIMETHOXYBENZENE
     Indication: BACK PAIN
     Dosage: 3 DOSAGE FORM
     Route: 048
     Dates: start: 20190729, end: 20190804
  3. PARACETAMOL [Suspect]
     Active Substance: ACETAMINOPHEN
     Indication: BACK PAIN
     Dosage: 3 DOSAGE FORM
     Route: 048
     Dates: start: 20190729, end: 20190804

REACTIONS (1)
  - Hepatocellular injury [Not Recovered/Not Resolved]

NARRATIVE: CASE EVENT DATE: 20190805
